FAERS Safety Report 8798166 (Version 2)
Quarter: 2015Q1

REPORT INFORMATION
  Report Type: Report from Study
  Country: US (occurrence: US)
  Receive Date: 20120920
  Receipt Date: 20150311
  Transmission Date: 20150721
  Serious: Yes (Death)
  Sender: FDA-Public Use
  Company Number: US-ROCHE-1122987

PATIENT
  Sex: Female

DRUGS (11)
  1. CIMETIDINE [Concomitant]
     Active Substance: CIMETIDINE
     Dosage: DOSE RECEIVED ON 03/MAY/2006, 24/MAY/2006, 05/JUN/2006, 14/JUN/2006 AND 26/JUN/2006
     Route: 042
  2. BENADRYL [Concomitant]
     Active Substance: DIPHENHYDRAMINE HYDROCHLORIDE
     Dosage: DOSE RECEIVED ON 03/MAY/2006 AND 24/MAY/2006.
     Route: 048
  3. ARANESP [Concomitant]
     Active Substance: DARBEPOETIN ALFA
     Dosage: DOSE RECEIVED ON 24/MAY/2006
     Route: 065
  4. ARANESP [Concomitant]
     Active Substance: DARBEPOETIN ALFA
     Route: 065
  5. ANZEMET [Concomitant]
     Active Substance: DOLASETRON MESYLATE
     Dosage: DOSE RECEIVED ON 03/MAY/2006, 24/MAY/2006, 05/JUN/2006, 14/JUN/2006 AND 26/JUN/2006
     Route: 042
  6. AVASTIN [Suspect]
     Active Substance: BEVACIZUMAB
     Indication: OVARIAN CANCER
     Dosage: DOSE RECEIVED ON  24/MAY/2006, 05/JUN/2006, 14/JUN/2006 AND 26/JUN/2006
     Route: 042
     Dates: start: 20060503
  7. AVASTIN [Suspect]
     Active Substance: BEVACIZUMAB
     Indication: MALIGNANT NEOPLASM OF UTERINE ADNEXA
  8. GEMZAR [Concomitant]
     Active Substance: GEMCITABINE HYDROCHLORIDE
     Route: 042
  9. TAXOTERE [Concomitant]
     Active Substance: DOCETAXEL
     Dosage: DOSE RECEIVED ON 03/MAY/2006, 24/MAY/2006, 05/JUN/2006, 14/JUN/2006 AND 26/JUN/2006
     Route: 042
  10. DECADRON [Concomitant]
     Active Substance: DEXAMETHASONE
     Dosage: DOSE RECEIVED ON 03/MAY/2006, 24/MAY/2006, 05/JUN/2006, 14/JUN/2006 AND 26/JUN/2006
     Route: 042
  11. ALOXI [Concomitant]
     Active Substance: PALONOSETRON HYDROCHLORIDE
     Route: 042

REACTIONS (7)
  - Gastrooesophageal reflux disease [Unknown]
  - Constipation [Unknown]
  - Fatigue [Unknown]
  - Death [Fatal]
  - Dysgeusia [Unknown]
  - Urinary tract infection [Unknown]
  - Appetite disorder [Unknown]
